FAERS Safety Report 14110443 (Version 1)
Quarter: 2017Q4

REPORT INFORMATION
  Report Type: Spontaneous
  Country: US (occurrence: US)
  Receive Date: 20171019
  Receipt Date: 20171019
  Transmission Date: 20180321
  Serious: Yes (Other)
  Sender: FDA-Public Use
  Company Number: None

PATIENT
  Age: 88 Year
  Sex: Female

DRUGS (1)
  1. FIRST MOUTHWASH BLM [Suspect]
     Active Substance: ALUMINUM HYDROXIDE\DIMETHICONE 410\DIPHENHYDRAMINE HYDROCHLORIDE\LIDOCAINE HYDROCHLORIDE\MAGNESIUM HYDROXIDE
     Indication: STOMATITIS
     Route: 002
     Dates: start: 20171014, end: 20171017

REACTIONS (1)
  - Epistaxis [None]

NARRATIVE: CASE EVENT DATE: 20171007
